FAERS Safety Report 7803303-3 (Version None)
Quarter: 2011Q4

REPORT INFORMATION
  Report Type: 
  Country: None (occurrence: None)
  Receive Date: 20111007
  Receipt Date: 20111004
  Transmission Date: 20120403
  Serious: Yes (Other)
  Sender: FDA-Public Use
  Company Number: FR-ABBOTT-11P-056-0856937-00

PATIENT
  Age: 55 Year
  Sex: Female

DRUGS (4)
  1. EPINEPHRINE [Concomitant]
     Indication: PRODUCT USED FOR UNKNOWN INDICATION
  2. PROPOFOL [Concomitant]
     Indication: INDUCTION OF ANAESTHESIA
  3. CISATRACURIUM BESYLATE [Suspect]
     Indication: PRODUCT USED FOR UNKNOWN INDICATION
  4. SUFENTANIL CITRATE [Concomitant]
     Indication: INDUCTION OF ANAESTHESIA

REACTIONS (3)
  - ANAPHYLACTOID SHOCK [None]
  - STRESS CARDIOMYOPATHY [None]
  - CARDIOGENIC SHOCK [None]
